FAERS Safety Report 19116811 (Version 3)
Quarter: 2021Q3

REPORT INFORMATION
  Report Type: Spontaneous
  Country: JP (occurrence: JP)
  Receive Date: 20210409
  Receipt Date: 20210713
  Transmission Date: 20211014
  Serious: Yes (Death, Life-Threatening, Other)
  Sender: FDA-Public Use
  Company Number: JP-ASTRAZENECA-2021A275399

PATIENT
  Age: 66 Year
  Sex: Female
  Weight: 80 kg

DRUGS (7)
  1. REZALTAS [Concomitant]
     Active Substance: AZELNIDIPINE\OLMESARTAN MEDOXOMIL
     Dosage: DOSE UNKNOWN
     Route: 048
     Dates: end: 20201005
  2. BETAXOLOL. [Concomitant]
     Active Substance: BETAXOLOL
     Dosage: DOSE UNKNOWN
     Route: 048
     Dates: end: 20201005
  3. XARELTO [Concomitant]
     Active Substance: RIVAROXABAN
     Dosage: DOSE UNKNOWN
     Route: 048
     Dates: end: 20201014
  4. EQUMET [Concomitant]
     Active Substance: METFORMIN HYDROCHLORIDE\VILDAGLIPTIN
     Dosage: DOSE UNKNOWN
     Route: 048
     Dates: end: 20200914
  5. CRESTOR [Suspect]
     Active Substance: ROSUVASTATIN CALCIUM
     Indication: DYSLIPIDAEMIA
     Route: 048
     Dates: end: 20200913
  6. BAYASPIRIN [Concomitant]
     Active Substance: ASPIRIN
     Dosage: DOSE UNKNOWN
     Route: 065
     Dates: end: 20201014
  7. CANAGLU [Concomitant]
     Active Substance: CANAGLIFLOZIN
     Dosage: DOSE UNKNOWN
     Route: 065
     Dates: end: 20200914

REACTIONS (19)
  - Dysphagia [Fatal]
  - Rhabdomyolysis [Unknown]
  - Hyperkalaemia [Unknown]
  - Muscular weakness [Fatal]
  - Loss of personal independence in daily activities [Unknown]
  - Ascites [Unknown]
  - Respiratory paralysis [Unknown]
  - Acidosis [Unknown]
  - Hypoalbuminaemia [Unknown]
  - Urinary tract infection [Unknown]
  - Septic shock [Fatal]
  - Immune-mediated myositis [Unknown]
  - Gait disturbance [Unknown]
  - Cytopenia [Unknown]
  - Pleural effusion [Unknown]
  - Fatigue [Unknown]
  - Cardiac arrest [Unknown]
  - Renal disorder [Unknown]
  - Myositis [Unknown]

NARRATIVE: CASE EVENT DATE: 2020
